FAERS Safety Report 8524871-2 (Version None)
Quarter: 2012Q3

REPORT INFORMATION
  Report Type: 
  Country: None (occurrence: None)
  Receive Date: 20120720
  Receipt Date: 20120718
  Transmission Date: 20120928
  Serious: Yes (Death, Hospitalization)
  Sender: FDA-Public Use
  Company Number: PHHY2012MX061777

PATIENT
  Age: 70 Year
  Sex: Female

DRUGS (1)
  1. SIMVASTATIN [Suspect]
     Indication: CORONARY ARTERY DISEASE
     Dosage: 80 MG, QD
     Route: 048

REACTIONS (26)
  - RHABDOMYOLYSIS [None]
  - MYOPATHY [None]
  - GENERAL PHYSICAL HEALTH DETERIORATION [None]
  - HEPATIC FAILURE [None]
  - MYALGIA [None]
  - AZOTAEMIA [None]
  - SYSTEMIC INFLAMMATORY RESPONSE SYNDROME [None]
  - ANAEMIA [None]
  - ABDOMINAL PAIN [None]
  - RENAL FAILURE [None]
  - ANURIA [None]
  - ESCHERICHIA TEST POSITIVE [None]
  - DISSEMINATED INTRAVASCULAR COAGULATION [None]
  - ACUTE PULMONARY OEDEMA [None]
  - MYOCARDIAL INFARCTION [None]
  - ABDOMINAL DISTENSION [None]
  - ASTHENIA [None]
  - OLIGURIA [None]
  - MULTI-ORGAN FAILURE [None]
  - SEPTIC SHOCK [None]
  - INTESTINAL OBSTRUCTION [None]
  - DISORIENTATION [None]
  - MUSCLE INJURY [None]
  - POLYURIA [None]
  - URINE ANALYSIS ABNORMAL [None]
  - LIVER FUNCTION TEST ABNORMAL [None]
